FAERS Safety Report 9350961 (Version 1)
Quarter: 2013Q2

REPORT INFORMATION
  Report Type: Report from Study
  Country: US (occurrence: US)
  Receive Date: 20130617
  Receipt Date: 20130617
  Transmission Date: 20140414
  Serious: Yes (Hospitalization)
  Sender: FDA-Public Use
  Company Number: PHHO2013US007659

PATIENT
  Age: 48 Year
  Sex: Female
  Weight: 141.95 kg

DRUGS (19)
  1. ACZ885 [Suspect]
     Indication: CARDIOVASCULAR EVENT PROPHYLAXIS
     Dosage: 300 MG, UNK
     Route: 058
     Dates: start: 20120611
  2. COUMADIN//COUMARIN [Suspect]
     Indication: DEEP VEIN THROMBOSIS
     Dosage: 5 MG, QD (DAILY AT BED TIME)
     Route: 048
     Dates: start: 20121219
  3. MULTIVITAMINS [Concomitant]
     Indication: PROPHYLAXIS
     Dosage: ONCE DAILY
  4. VITAMIN B COMPLEX [Concomitant]
     Indication: PROPHYLAXIS
     Dosage: 100 MG, QD
  5. C-VITAMIN [Concomitant]
     Indication: PROPHYLAXIS
     Dosage: 1000 MG, QD
  6. PROTONIX [Concomitant]
     Indication: OESOPHAGEAL ULCER
     Dosage: 40 MG, UNK
     Dates: start: 20120805
  7. LOVAZA [Concomitant]
     Indication: HYPERLIPIDAEMIA
     Dosage: 500 MG, QD
     Dates: start: 20120805
  8. FERROUS SULFATE [Concomitant]
     Indication: ANAEMIA
     Dosage: 325 MG, QD
     Dates: start: 20130406
  9. METOPROLOL [Concomitant]
     Indication: HYPERTENSION
     Dosage: 50 MG, BID
     Dates: start: 20100604
  10. LISINOPRIL [Concomitant]
     Indication: HYPERTENSION
     Dosage: 10 MG, QD
     Dates: start: 20110817
  11. SYNTHROID [Concomitant]
     Indication: HYPOTHYROIDISM
     Dosage: 0.2 MG, QD
  12. DOXEPIN [Concomitant]
     Indication: DEPRESSION
     Dosage: 150 MG, QD
     Dates: start: 20120510
  13. METFORMIN [Concomitant]
     Indication: DIABETES MELLITUS
     Dosage: 1000 MG, BID
  14. GLIMEPIRIDE [Concomitant]
     Indication: DIABETES MELLITUS
     Dosage: 4 MG, BID
  15. TRICOR [Concomitant]
     Indication: HYPERLIPIDAEMIA
     Dosage: 145 MG, UNK
  16. NOVOLOG [Concomitant]
     Indication: DIABETES MELLITUS
     Dosage: UNK
  17. SYMLIN [Concomitant]
     Indication: DIABETES MELLITUS
     Dosage: 120 MG, BID
  18. CYCLOSET [Concomitant]
     Indication: DIABETES MELLITUS
     Dosage: 0.8 MG, QD
     Dates: start: 20110105
  19. LANTUS [Concomitant]
     Indication: DIABETES MELLITUS
     Dosage: UNK
     Dates: start: 20130315

REACTIONS (2)
  - Anaemia [Recovering/Resolving]
  - Blood creatinine increased [None]
